FAERS Safety Report 21983058 (Version 2)
Quarter: 2023Q1

REPORT INFORMATION
  Report Type: Spontaneous
  Country: RU (occurrence: RU)
  Receive Date: 20230213
  Receipt Date: 20230329
  Transmission Date: 20230418
  Serious: Yes (Other)
  Sender: FDA-Public Use
  Company Number: RU-drreddys-LIT/RUS/23/0161001

PATIENT
  Age: 46 Year
  Sex: Male

DRUGS (4)
  1. MELOXICAM [Suspect]
     Active Substance: MELOXICAM
     Indication: Product used for unknown indication
  2. MELOXICAM [Suspect]
     Active Substance: MELOXICAM
     Indication: Product used for unknown indication
     Dosage: INCREASING DOSE TO 3 / DAY
  3. SULFASALAZINE [Suspect]
     Active Substance: SULFASALAZINE
     Indication: Product used for unknown indication
  4. SULFASALAZINE [Suspect]
     Active Substance: SULFASALAZINE
     Indication: Product used for unknown indication

REACTIONS (5)
  - Ankylosing spondylitis [Recovering/Resolving]
  - Sacroiliitis [Recovering/Resolving]
  - Myofascial pain syndrome [Recovering/Resolving]
  - Tendonitis [Recovering/Resolving]
  - Vitamin D deficiency [Recovering/Resolving]
